FAERS Safety Report 9731952 (Version 2)
Quarter: 2013Q4

REPORT INFORMATION
  Report Type: Report from Study
  Country: US (occurrence: US)
  Receive Date: 20131205
  Receipt Date: 20131218
  Transmission Date: 20140711
  Serious: Yes (Death)
  Sender: FDA-Public Use
  Company Number: PHEH2013US025188

PATIENT
  Sex: Female

DRUGS (4)
  1. AFINITOR [Suspect]
     Indication: BREAST CANCER METASTATIC
     Dosage: 10 MG, QD
     Route: 048
  2. DILAUDID [Concomitant]
     Dosage: UNK UKN, PRN
  3. XANAX [Concomitant]
     Dosage: UNK UKN, PRN
  4. EXEMESTANE [Concomitant]

REACTIONS (1)
  - Malignant neoplasm progression [Fatal]
